FAERS Safety Report 11364213 (Version 4)
Quarter: 2015Q4

REPORT INFORMATION
  Report Type: Report from Study
  Country: GR (occurrence: GR)
  Receive Date: 20150811
  Receipt Date: 20151105
  Transmission Date: 20160304
  Serious: Yes (Life-Threatening, Other)
  Sender: FDA-Public Use
  Company Number: GR-AMGEN-GRCCT2015080874

PATIENT
  Age: 44 Year
  Sex: Female
  Weight: 110 kg

DRUGS (17)
  1. RED BLOOD CELLS, CONCENTRATED [Concomitant]
     Active Substance: HUMAN RED BLOOD CELL
     Dosage: 1 UNK, UNK
     Route: 042
     Dates: start: 20150728, end: 20150826
  2. COLISTIN [Concomitant]
     Active Substance: COLISTIN
     Dosage: 4.5 UNK, UNK
     Route: 042
     Dates: start: 20150726, end: 20150811
  3. FRESH FROZEN PLASMA [Concomitant]
     Active Substance: HUMAN PLASMA
     Dosage: 2 UNK, UNK
     Route: 042
     Dates: start: 20150727, end: 20150813
  4. DEXAMETHASONE. [Concomitant]
     Active Substance: DEXAMETHASONE
     Dosage: 20-24 MG, UNK
     Dates: start: 20150726, end: 20150814
  5. PLATELETS [Concomitant]
     Active Substance: HUMAN PLATELET, ALLOGENIC
     Dosage: 2 UNK, UNK
     Route: 042
     Dates: start: 20150727, end: 20150826
  6. ZOVIRAX [Concomitant]
     Active Substance: ACYCLOVIR
     Dosage: 200 MG, UNK
     Route: 048
     Dates: start: 20150708, end: 20150826
  7. AMBISOME [Concomitant]
     Active Substance: AMPHOTERICIN B
     Dosage: 500-700 MG, UNK
     Route: 042
     Dates: start: 20150804, end: 20150826
  8. FENTANYL. [Concomitant]
     Active Substance: FENTANYL
     Dosage: 20-50 MUG, UNK
     Route: 062
     Dates: start: 20150802, end: 20150826
  9. VONCON [Concomitant]
     Dosage: 1 G, UNK
     Route: 042
     Dates: start: 20150731, end: 20150826
  10. AVELOX [Concomitant]
     Active Substance: MOXIFLOXACIN HYDROCHLORIDE
     Dosage: 400 MG, UNK
     Route: 042
     Dates: start: 20150708, end: 20150727
  11. TRAMADOL HYDROCHLORIDE. [Concomitant]
     Active Substance: TRAMADOL HYDROCHLORIDE
     Dosage: 100 MG, UNK
     Route: 042
     Dates: start: 20150802, end: 20150804
  12. BLINATUMOMAB [Suspect]
     Active Substance: BLINATUMOMAB
     Indication: ACUTE LYMPHOCYTIC LEUKAEMIA
     Dosage: 28 MUG, UNK
     Route: 041
     Dates: start: 20150730
  13. MERONEM [Concomitant]
     Active Substance: MEROPENEM
     Dosage: 2 G, UNK
     Route: 042
     Dates: start: 20150708, end: 20150826
  14. BACTRIMEL [Concomitant]
     Active Substance: SULFAMETHOXAZOLE\TRIMETHOPRIM
     Dosage: 1 UNK, UNK
     Route: 048
     Dates: start: 20150708, end: 20150826
  15. ZYLAPOUR [Concomitant]
     Dosage: 300 MG, UNK
     Route: 048
     Dates: start: 20150724, end: 20150826
  16. MYCAMINE [Concomitant]
     Active Substance: MICAFUNGIN SODIUM
     Dosage: 100 MG/M2, UNK
     Route: 042
     Dates: start: 20150708, end: 20150803
  17. PETHIDINE [Concomitant]
     Active Substance: MEPERIDINE
     Dosage: 25 MG, UNK
     Route: 042
     Dates: start: 20150802, end: 20150826

REACTIONS (1)
  - Histiocytosis haematophagic [Recovered/Resolved]

NARRATIVE: CASE EVENT DATE: 20150806
